FAERS Safety Report 10229351 (Version 2)
Quarter: 2014Q2

REPORT INFORMATION
  Report Type: Spontaneous
  Country: CN (occurrence: CN)
  Receive Date: 20140611
  Receipt Date: 20140618
  Transmission Date: 20141212
  Serious: Yes (Other)
  Sender: FDA-Public Use
  Company Number: CN-PFIZER INC-2014154764

PATIENT
  Age: 56 Year
  Sex: Female
  Weight: 64 kg

DRUGS (3)
  1. PHARMORUBICIN [Suspect]
     Indication: BREAST CANCER
     Dosage: 80 MG, 1X/DAY
     Route: 041
     Dates: start: 20130621, end: 20130621
  2. PHARMORUBICIN [Suspect]
     Dosage: 70 MG, 1X/DAY
     Route: 041
     Dates: start: 20130622, end: 20130622
  3. ENDOXAN [Suspect]
     Indication: BREAST CANCER
     Dosage: 1000 MG, 1X/DAY
     Route: 041
     Dates: start: 20130621, end: 20130621

REACTIONS (2)
  - Leukopenia [Recovered/Resolved]
  - Agranulocytosis [Recovered/Resolved]
